FAERS Safety Report 4924513-9 (Version None)
Quarter: 2006Q1

REPORT INFORMATION
  Report Type: 
  Country: None (occurrence: None)
  Receive Date: 20060222
  Receipt Date: 20060214
  Transmission Date: 20060701
  Serious: Yes (Life-Threatening)
  Sender: FDA-Public Use
  Company Number: 2006022600

PATIENT
  Age: 80 Year
  Sex: Female

DRUGS (14)
  1. NORVASC [Suspect]
     Indication: HYPERTENSION
     Dosage: 5 MG DAILY, ORAL
     Route: 048
     Dates: start: 20051201, end: 20060213
  2. VEGETAMIN (CHLORPROMAZINE HYDROCHLORIDE, PHENOBARBITAL, PROMETHAZINE H [Suspect]
     Indication: ILL-DEFINED DISORDER
     Dosage: ORAL
     Route: 048
     Dates: end: 20060213
  3. MODACIN (CEFTAZIDIME) [Suspect]
     Indication: ILL-DEFINED DISORDER
     Dosage: 2 GRAM DAILY, INTRAVENOUS
     Route: 042
     Dates: end: 20060213
  4. TAMIFLU [Suspect]
     Indication: ILL-DEFINED DISORDER
     Dosage: 150 MG DAILY, ORAL
     Route: 048
  5. CALONAL (PARACETAMOL) [Suspect]
     Indication: ILL-DEFINED DISORDER
     Dosage: PRN, ORAL
     Route: 048
     Dates: end: 20060213
  6. ALDACTONE [Concomitant]
  7. VOLTAREN [Concomitant]
  8. AMINOFLUID (AMINO ACIDS NOS, ELECTROLYTES NOS, GLUCOSE) [Concomitant]
  9. VITAMIN B 1-6-12 (CYANOCOBALAMIN, PYRIDOXINE HYDROCHLORIDE, THIAMINE H [Concomitant]
  10. POTASSIUM CHLORIDE [Concomitant]
  11. BUFFERIN [Concomitant]
  12. PENMALIN (PIPERACILLIN SODUM) [Concomitant]
  13. LASIX [Concomitant]
  14. MICARDIS [Concomitant]

REACTIONS (13)
  - AORTIC VALVE STENOSIS [None]
  - ASCITES [None]
  - CARDIAC FAILURE [None]
  - DRUG HYPERSENSITIVITY [None]
  - GENERAL PHYSICAL HEALTH DETERIORATION [None]
  - GENERALISED OEDEMA [None]
  - INFECTION [None]
  - MUCOUS MEMBRANE DISORDER [None]
  - PULMONARY CONGESTION [None]
  - PURPURA [None]
  - SKIN EXFOLIATION [None]
  - STEVENS-JOHNSON SYNDROME [None]
  - TOXIC EPIDERMAL NECROLYSIS [None]
